FAERS Safety Report 19227288 (Version 2)
Quarter: 2021Q3

REPORT INFORMATION
  Report Type: Report from Study
  Country: EG (occurrence: EG)
  Receive Date: 20210506
  Receipt Date: 20210715
  Transmission Date: 20211014
  Serious: Yes (Other)
  Sender: FDA-Public Use
  Company Number: EG-EMD SERONO-9182522

PATIENT
  Age: 22 Year
  Sex: Female

DRUGS (5)
  1. CORTISONE [Suspect]
     Active Substance: CORTISONE
     Indication: PRODUCT USED FOR UNKNOWN INDICATION
     Dosage: THERAPY START DATE: 22 FEB 2021
  2. TEGRETOL [Concomitant]
     Active Substance: CARBAMAZEPINE
     Indication: PRODUCT USED FOR UNKNOWN INDICATION
  3. CEREBROLYSIN                       /01542301/ [Concomitant]
     Indication: PRODUCT USED FOR UNKNOWN INDICATION
  4. SOLU?MEDROL [Concomitant]
     Active Substance: METHYLPREDNISOLONE SODIUM SUCCINATE
     Indication: PRODUCT USED FOR UNKNOWN INDICATION
     Dosage: THERAPY START DATE: 2021
  5. REBIF [Suspect]
     Active Substance: INTERFERON BETA-1A
     Indication: MULTIPLE SCLEROSIS
     Route: 058
     Dates: start: 20191117

REACTIONS (10)
  - Multiple sclerosis relapse [Recovering/Resolving]
  - Headache [Recovered/Resolved]
  - Maternal exposure during pregnancy [Recovered/Resolved]
  - Suppressed lactation [Unknown]
  - Oxygen saturation decreased [Unknown]
  - Dyspnoea [Unknown]
  - Disturbance in attention [Unknown]
  - Breast feeding [Not Recovered/Not Resolved]
  - Amniotic fluid volume decreased [Recovered/Resolved]
  - Normal newborn [Recovered/Resolved]

NARRATIVE: CASE EVENT DATE: 202006
